FAERS Safety Report 18580202 (Version 1)
Quarter: 2020Q4

REPORT INFORMATION
  Report Type: Spontaneous
  Country: US (occurrence: US)
  Receive Date: 20201204
  Receipt Date: 20201204
  Transmission Date: 20210114
  Serious: No
  Sender: FDA-Public Use
  Company Number: US-GLAXOSMITHKLINE-US2020238618

PATIENT
  Age: 84 Year
  Sex: Female

DRUGS (1)
  1. VOLTAREN ARTHRITIS PAIN [Suspect]
     Active Substance: DICLOFENAC SODIUM
     Indication: ARTHRITIS
     Dosage: UNK, ONCE EVERY NIGHT AND I USE IT IN THE

REACTIONS (3)
  - Drug ineffective [Unknown]
  - Wrong technique in product usage process [Unknown]
  - Product use issue [Unknown]
